FAERS Safety Report 12136787 (Version 1)
Quarter: 2016Q1

REPORT INFORMATION
  Report Type: Spontaneous
  Country: NZ (occurrence: NZ)
  Receive Date: 20160302
  Receipt Date: 20160302
  Transmission Date: 20160526
  Serious: Yes (Hospitalization)
  Sender: FDA-Public Use
  Company Number: NZ-GLAXOSMITHKLINE-NZ2016GSK028342

PATIENT
  Age: 70 Year
  Sex: Female

DRUGS (1)
  1. FLIXONASE HAYFEVER AND ALLERGY 24 HOUR [Suspect]
     Active Substance: FLUTICASONE PROPIONATE
     Indication: SINUS DISORDER
     Dosage: UNK
     Route: 045
     Dates: start: 20160222, end: 20160222

REACTIONS (2)
  - Insomnia [Recovered/Resolved]
  - Chest pain [Recovered/Resolved]

NARRATIVE: CASE EVENT DATE: 20160222
